FAERS Safety Report 10023031 (Version 1)
Quarter: 2014Q1

REPORT INFORMATION
  Report Type: Spontaneous
  Country: US (occurrence: US)
  Receive Date: 20140319
  Receipt Date: 20140319
  Transmission Date: 20141002
  Serious: No
  Sender: FDA-Public Use
  Company Number: US-TEVA-469678USA

PATIENT
  Age: 87 Year
  Sex: Female
  Weight: 65.83 kg

DRUGS (4)
  1. PROAIR HFA [Suspect]
     Indication: BRONCHIECTASIS
     Dates: start: 20140314, end: 20140314
  2. PROAIR HFA [Suspect]
     Indication: ASTHMA
  3. FLOVENT [Concomitant]
     Indication: BRONCHIECTASIS
  4. SPIRIVA [Concomitant]
     Indication: BRONCHIECTASIS

REACTIONS (1)
  - Muscle spasms [Recovered/Resolved]
